FAERS Safety Report 9121092 (Version 1)
Quarter: 2013Q1

REPORT INFORMATION
  Report Type: Spontaneous
  Country: GB (occurrence: GB)
  Receive Date: 20130226
  Receipt Date: 20130226
  Transmission Date: 20140127
  Serious: Yes (Other)
  Sender: FDA-Public Use
  Company Number: GB-ELI_LILLY_AND_COMPANY-GB201301009768

PATIENT
  Age: 72 Year
  Sex: Male

DRUGS (1)
  1. CIALIS [Suspect]

REACTIONS (1)
  - Diplopia [Recovering/Resolving]
